FAERS Safety Report 6383186-1 (Version None)
Quarter: 2009Q3

REPORT INFORMATION
  Report Type: 
  Country: None (occurrence: None)
  Receive Date: 20090929
  Receipt Date: 20090916
  Transmission Date: 20100115
  Serious: Yes (Other)
  Sender: FDA-Public Use
  Company Number: 2009AP003777

PATIENT
  Age: 56 Year
  Sex: Female

DRUGS (4)
  1. PAROXETINE HCL [Suspect]
     Indication: DEPRESSION
     Dosage: 5 MG;QD;PO;  10 MG;QD;PO;  2.5 MG;QD;PO
     Route: 048
     Dates: end: 20090831
  2. PAROXETINE HCL [Suspect]
     Indication: DEPRESSION
     Dosage: 5 MG;QD;PO;  10 MG;QD;PO;  2.5 MG;QD;PO
     Route: 048
     Dates: start: 20090527
  3. GABAPENTIN [Concomitant]
  4. NEFAZODONE HCL [Concomitant]

REACTIONS (9)
  - ABDOMINAL DISCOMFORT [None]
  - ABDOMINAL PAIN [None]
  - DECREASED APPETITE [None]
  - HYPERHIDROSIS [None]
  - INSOMNIA [None]
  - MEMORY IMPAIRMENT [None]
  - NAUSEA [None]
  - WEIGHT DECREASED [None]
  - WITHDRAWAL SYNDROME [None]
